FAERS Safety Report 25815747 (Version 1)
Quarter: 2025Q3

REPORT INFORMATION
  Report Type: Spontaneous
  Country: US (occurrence: US)
  Receive Date: 20250918
  Receipt Date: 20250918
  Transmission Date: 20251020
  Serious: No
  Sender: KARYOPHARM THERAPEUTICS
  Company Number: US-KARYOPHARM-2025KPT100741

PATIENT

DRUGS (6)
  1. SELINEXOR [Suspect]
     Active Substance: SELINEXOR
     Indication: Plasma cell myeloma
     Route: 048
     Dates: start: 20250907
  2. DEXAMETHASONE [Concomitant]
     Active Substance: DEXAMETHASONE
  3. OLANZAPINE [Concomitant]
     Active Substance: OLANZAPINE
  4. ONDANSETRON [Concomitant]
     Active Substance: ONDANSETRON
  5. POMALYST [Concomitant]
     Active Substance: POMALIDOMIDE
  6. VALACYCLOVIR [Concomitant]
     Active Substance: VALACYCLOVIR HYDROCHLORIDE

REACTIONS (1)
  - Fatigue [Unknown]

NARRATIVE: CASE EVENT DATE: 20250901
